FAERS Safety Report 12605701 (Version 1)
Quarter: 2016Q3

REPORT INFORMATION
  Report Type: Spontaneous
  Country: US (occurrence: None)
  Receive Date: 20160728
  Receipt Date: 20160728
  Transmission Date: 20161109
  Serious: Yes (Life-Threatening)
  Sender: FDA-Public Use
  Company Number: None

PATIENT
  Age: 64 Year
  Sex: Female

DRUGS (1)
  1. HYOSCYAMINE. [Suspect]
     Active Substance: HYOSCYAMINE
     Indication: GASTROINTESTINAL PAIN
     Route: 060
     Dates: start: 20160628, end: 20160628

REACTIONS (10)
  - Dizziness [None]
  - Seizure [None]
  - Product solubility abnormal [None]
  - Product taste abnormal [None]
  - Incoherent [None]
  - Mental status changes [None]
  - Nausea [None]
  - Dysarthria [None]
  - Product substitution issue [None]
  - Malaise [None]

NARRATIVE: CASE EVENT DATE: 20160628
